FAERS Safety Report 17843554 (Version 2)
Quarter: 2020Q2

REPORT INFORMATION
  Report Type: Other
  Country: MY (occurrence: MY)
  Receive Date: 20200531
  Receipt Date: 20200624
  Transmission Date: 20200714
  Serious: Yes (Hospitalization)
  Sender: FDA-Public Use
  Company Number: MY-B.BRAUN MEDICAL INC.-2085307

PATIENT
  Age: 62 Year
  Sex: Female

DRUGS (2)
  1. LIDOCAINE HYDROCHLORIDE AND DEXTROSE [Suspect]
     Active Substance: DEXTROSE\LIDOCAINE HYDROCHLORIDE
     Indication: DENTAL DISORDER PROPHYLAXIS
  2. EPINEPHRINE. [Concomitant]
     Active Substance: EPINEPHRINE

REACTIONS (4)
  - Bradycardia [None]
  - Metabolic acidosis [None]
  - Syncope [None]
  - Hyperkalaemia [None]
